FAERS Safety Report 7953669-9 (Version None)
Quarter: 2011Q4

REPORT INFORMATION
  Report Type: 
  Country: None (occurrence: None)
  Receive Date: 20111202
  Receipt Date: 20111124
  Transmission Date: 20120403
  Serious: Yes (Other)
  Sender: FDA-Public Use
  Company Number: FI-B.I. PHARMACEUTICALS,INC./RIDGEFIELD-2011-SW-00455SF

PATIENT
  Age: 70 Year
  Sex: Female

DRUGS (20)
  1. ZOLT [Concomitant]
     Indication: PROPHYLAXIS AGAINST GASTROINTESTINAL ULCER
     Dates: start: 20110606
  2. KALCIPOS-D [Concomitant]
     Indication: VITAMIN SUPPLEMENTATION
     Dosage: 1000 MG
     Dates: start: 20111025
  3. BONIVA [Concomitant]
     Indication: OSTEOPOROSIS PROPHYLAXIS
     Dosage: 5 MG
     Dates: start: 20091012
  4. GLUCOPHAGE [Concomitant]
     Indication: DIABETES MELLITUS
     Dosage: 2000 MG
     Dates: start: 20110103
  5. VICTOZA [Concomitant]
     Indication: DIABETES MELLITUS
     Dosage: 1.2 MG
     Dates: start: 20110103
  6. NITROGLYCERIN [Concomitant]
     Dosage: 1X1 (WHEN NEEDED)
     Dates: start: 20070321
  7. EMGESAN [Concomitant]
     Indication: MUSCLE SPASMS
     Dosage: 500 MG
     Dates: start: 20110902
  8. PRADAXA [Suspect]
     Indication: CEREBROVASCULAR ACCIDENT PROPHYLAXIS
     Dosage: 300 MG
     Route: 048
     Dates: start: 20110905
  9. WARFARIN SODIUM [Suspect]
     Indication: ATRIAL FIBRILLATION
     Dates: start: 20070101, end: 20110901
  10. KALCIPOS-D [Concomitant]
     Indication: MINERAL SUPPLEMENTATION
  11. PREDNISOLONE [Concomitant]
     Indication: POLYMYALGIA RHEUMATICA
     Dosage: 1 EVERY OTHER DAY, 1/2 EVERY OTHER DAY
     Dates: start: 20070611
  12. THYROXIN [Concomitant]
     Dosage: DESCRIBED IN NARRATIVE
     Dates: start: 20101117
  13. PANACOD [Concomitant]
     Dosage: 1-2X3
     Dates: start: 20080509
  14. ORMOX [Concomitant]
     Indication: CORONARY ARTERY DISEASE
     Dosage: 1X1-2
     Dates: start: 20110902
  15. PRADAXA [Suspect]
     Indication: ATRIAL FIBRILLATION
  16. DIGOXIN SEMI [Concomitant]
     Indication: ATRIAL FIBRILLATION
     Dosage: 0.125 MG
     Dates: start: 20101228
  17. ATORVASTATIN ORION [Concomitant]
     Indication: BLOOD CHOLESTEROL
     Dosage: 10 MG
     Dates: start: 20110516
  18. MOVIPREP [Concomitant]
     Dates: start: 20110117
  19. FEMARA [Concomitant]
     Dosage: 2.5 MG
     Dates: start: 20090515
  20. VISCOTEARS [Concomitant]
     Indication: DRY EYE
     Dates: start: 20110218

REACTIONS (6)
  - SPEECH DISORDER [None]
  - CONFUSIONAL STATE [None]
  - BREAST CANCER METASTATIC [None]
  - MALAISE [None]
  - TRANSIENT ISCHAEMIC ATTACK [None]
  - AMNESIA [None]
